FAERS Safety Report 9369852 (Version 2)
Quarter: 2014Q1

REPORT INFORMATION
  Report Type: Spontaneous
  Country: US (occurrence: US)
  Receive Date: 20130626
  Receipt Date: 20140306
  Transmission Date: 20141002
  Serious: Yes (Death, Other)
  Sender: FDA-Public Use
  Company Number: US-BRISTOL-MYERS SQUIBB COMPANY-19019215

PATIENT
  Sex: Female

DRUGS (2)
  1. COUMADIN [Suspect]
  2. WARFARIN SODIUM [Suspect]

REACTIONS (2)
  - Death [Fatal]
  - Cerebrovascular accident [Unknown]
